FAERS Safety Report 6946046-0 (Version None)
Quarter: 2010Q3

REPORT INFORMATION
  Report Type: 
  Country: None (occurrence: None)
  Receive Date: 20100827
  Receipt Date: 20100224
  Transmission Date: 20110219
  Serious: No
  Sender: FDA-Public Use
  Company Number: A0846244A

PATIENT
  Age: 37 Year
  Sex: Female

DRUGS (4)
  1. ZOVIRAX [Suspect]
     Dosage: 400MG TWICE PER DAY
     Route: 048
     Dates: start: 19890101, end: 20090101
  2. VALTREX [Suspect]
     Dosage: 500MG PER DAY
     Route: 048
  3. ACYCLOVIR SODIUM [Suspect]
     Dosage: 400MG TWICE PER DAY
     Route: 048
     Dates: start: 19920101, end: 20090701
  4. NO CONCURRENT MEDICATION [Concomitant]

REACTIONS (12)
  - ABDOMINAL DISCOMFORT [None]
  - BLISTER [None]
  - DIARRHOEA [None]
  - DRUG INEFFECTIVE [None]
  - ERYTHEMA [None]
  - INCORRECT DOSE ADMINISTERED [None]
  - LIP HAEMORRHAGE [None]
  - OEDEMA MOUTH [None]
  - ORAL HERPES [None]
  - PARAESTHESIA [None]
  - SCAR [None]
  - VOMITING [None]
